FAERS Safety Report 7426047-9 (Version None)
Quarter: 2011Q2

REPORT INFORMATION
  Report Type: 
  Country: None (occurrence: None)
  Receive Date: 20110420
  Receipt Date: 20110411
  Transmission Date: 20111010
  Serious: Yes (Death)
  Sender: FDA-Public Use
  Company Number: JP-ROCHE-772101

PATIENT
  Age: 62 Year
  Sex: Male

DRUGS (4)
  1. BUSULFAN [Concomitant]
     Route: 041
  2. TACROLIMUS HYDRATE [Concomitant]
     Dosage: DOSAGE IS UNCERTAIN.
  3. FLUDARABINE PHOSPHATE [Concomitant]
  4. CELLCEPT [Suspect]
     Indication: PROPHYLAXIS AGAINST GRAFT VERSUS HOST DISEASE
     Dosage: DOSAGE IS UNCERTAIN.
     Route: 048

REACTIONS (1)
  - CEREBRAL HAEMORRHAGE [None]
